FAERS Safety Report 8174517-0 (Version None)
Quarter: 2012Q1

REPORT INFORMATION
  Report Type: 
  Country: None (occurrence: None)
  Receive Date: 20120229
  Receipt Date: 20120221
  Transmission Date: 20120608
  Serious: Yes (Other)
  Sender: FDA-Public Use
  Company Number: US-ASTRAZENECA-2011SE47794

PATIENT
  Age: 66 Year
  Sex: Female

DRUGS (7)
  1. LISINOPRIL [Suspect]
     Route: 048
  2. FUROSEMIDE [Suspect]
  3. AMITRIPTYLINE HCL [Suspect]
  4. CRESTOR [Suspect]
     Route: 048
  5. ZOLOFT [Suspect]
  6. ATENOLOL [Suspect]
     Route: 048
  7. NEXIUM [Suspect]
     Route: 048

REACTIONS (6)
  - MEMORY IMPAIRMENT [None]
  - HEAD INJURY [None]
  - CEREBRAL HAEMORRHAGE [None]
  - FALL [None]
  - CEREBROVASCULAR ACCIDENT [None]
  - DEMENTIA [None]
